FAERS Safety Report 5826625-4 (Version None)
Quarter: 2008Q3

REPORT INFORMATION
  Report Type: 
  Country: None (occurrence: None)
  Receive Date: 20080728
  Receipt Date: 20080728
  Transmission Date: 20090109
  Serious: Yes (Life-Threatening, Hospitalization)
  Sender: FDA-Public Use
  Company Number: None

PATIENT
  Age: 51 Year
  Sex: Female
  Weight: 110.2241 kg

DRUGS (4)
  1. CODEINE COUGH SYRUP PRESCRIPTION STRENGTH [Suspect]
     Indication: COUGH
     Dates: start: 20080414, end: 20080415
  2. CODEINE COUGH SYRUP PRESCRIPTION STRENGTH [Suspect]
     Indication: NASOPHARYNGITIS
     Dates: start: 20080414, end: 20080415
  3. DEXTROMETHORPHAN REC. DOSE [Suspect]
     Indication: COUGH
     Dates: start: 20080410, end: 20080413
  4. DEXTROMETHORPHAN REC. DOSE [Suspect]
     Indication: NASOPHARYNGITIS
     Dates: start: 20080410, end: 20080413

REACTIONS (4)
  - FLIGHT OF IDEAS [None]
  - PANIC ATTACK [None]
  - SEROTONIN SYNDROME [None]
  - THIRST [None]
